FAERS Safety Report 16997012 (Version 2)
Quarter: 2021Q2

REPORT INFORMATION
  Report Type: Spontaneous
  Country: AU (occurrence: AU)
  Receive Date: 20191105
  Receipt Date: 20210614
  Transmission Date: 20210716
  Serious: No
  Sender: FDA-Public Use
  Company Number: AU-GLAXOSMITHKLINE-AU2019APC198744

PATIENT

DRUGS (1)
  1. NICABATE [Suspect]
     Active Substance: NICOTINE
     Indication: SMOKING CESSATION THERAPY
     Dosage: UNK

REACTIONS (1)
  - Nicotine dependence [Unknown]
